FAERS Safety Report 7149458-8 (Version None)
Quarter: 2010Q4

REPORT INFORMATION
  Report Type: 
  Country: None (occurrence: None)
  Receive Date: 20101209
  Receipt Date: 20101129
  Transmission Date: 20110411
  Serious: No
  Sender: FDA-Public Use
  Company Number: US-PFIZER INC-2010161684

PATIENT
  Age: 47 Year
  Sex: Female
  Weight: 111 kg

DRUGS (4)
  1. ALAVERT [Suspect]
     Indication: HYPERSENSITIVITY
     Dosage: 1 TAB DAILY
     Route: 048
     Dates: start: 20101126, end: 20101127
  2. ALAVERT [Suspect]
     Indication: RHINORRHOEA
  3. ALAVERT [Suspect]
     Indication: EYE PRURITUS
  4. ALAVERT [Suspect]
     Indication: THROAT IRRITATION

REACTIONS (1)
  - DRUG INEFFECTIVE [None]
